FAERS Safety Report 5224008-1 (Version None)
Quarter: 2007Q1

REPORT INFORMATION
  Report Type: 
  Country: None (occurrence: None)
  Receive Date: 20070130
  Receipt Date: 20070118
  Transmission Date: 20070707
  Serious: Yes (Death)
  Sender: FDA-Public Use
  Company Number: EG-ROCHE-477953

PATIENT
  Age: 16 Year
  Sex: Female

DRUGS (2)
  1. TAMIFLU [Suspect]
     Indication: AVIAN INFLUENZA
     Route: 065
     Dates: start: 20061221
  2. AMANTADINE HCL [Concomitant]

REACTIONS (1)
  - AVIAN INFLUENZA [None]
